FAERS Safety Report 15398315 (Version 1)
Quarter: 2018Q3

REPORT INFORMATION
  Report Type: Spontaneous
  Country: US (occurrence: US)
  Receive Date: 20180918
  Receipt Date: 20180918
  Transmission Date: 20181010
  Serious: Yes (Other)
  Sender: FDA-Public Use
  Company Number: US-ELI_LILLY_AND_COMPANY-US201809003247

PATIENT
  Sex: Female

DRUGS (2)
  1. NOVOLOG [Concomitant]
     Active Substance: INSULIN ASPART
     Indication: PRODUCT USED FOR UNKNOWN INDICATION
  2. HUMALOG [Suspect]
     Active Substance: INSULIN LISPRO
     Indication: PRODUCT USED FOR UNKNOWN INDICATION
     Dosage: UNK, UNKNOWN
     Route: 065
     Dates: start: 2010

REACTIONS (9)
  - Blood pressure increased [Recovered/Resolved]
  - Dizziness [Unknown]
  - Balance disorder [Unknown]
  - Arthritis [Unknown]
  - General physical health deterioration [Unknown]
  - End stage renal disease [Unknown]
  - Steal syndrome [Recovering/Resolving]
  - Peripheral coldness [Unknown]
  - Blindness [Unknown]

NARRATIVE: CASE EVENT DATE: 2013
